FAERS Safety Report 5598562-4 (Version None)
Quarter: 2008Q1

REPORT INFORMATION
  Report Type: 
  Country: None (occurrence: None)
  Receive Date: 20080122
  Receipt Date: 20080114
  Transmission Date: 20080703
  Serious: Yes (Other)
  Sender: FDA-Public Use
  Company Number: US-ELI_LILLY_AND_COMPANY-US200801002792

PATIENT
  Age: 61 Year
  Sex: Female

DRUGS (3)
  1. GEMZAR [Suspect]
     Indication: OVARIAN CANCER RECURRENT
     Dosage: 1500 MG, DAY1/DAY 8 SCHEDULE
     Route: 065
     Dates: start: 20070101
  2. CARBOPLATIN [Concomitant]
     Indication: OVARIAN CANCER RECURRENT
     Dosage: 250 MG, DAY 1/DAY 8 SCHEDULE
     Route: 065
     Dates: start: 20070101
  3. ARANESP [Concomitant]
     Dosage: UNK, UNKNOWN
     Route: 065

REACTIONS (4)
  - CAPILLARY LEAK SYNDROME [None]
  - GENERALISED OEDEMA [None]
  - LABORATORY TEST ABNORMAL [None]
  - WEIGHT INCREASED [None]
